FAERS Safety Report 11004685 (Version 1)
Quarter: 2015Q2

REPORT INFORMATION
  Report Type: Report from Study
  Country: BE (occurrence: BE)
  Receive Date: 20150409
  Receipt Date: 20150409
  Transmission Date: 20150821
  Serious: Yes (Hospitalization)
  Sender: FDA-Public Use
  Company Number: BE-ABBVIE-13P-013-1047409-00

PATIENT
  Age: 72 Year
  Sex: Female

DRUGS (9)
  1. DUODOPA [Suspect]
     Active Substance: CARBIDOPA\LEVODOPA
     Route: 050
     Dates: start: 20130215, end: 20130218
  2. DUODOPA [Suspect]
     Active Substance: CARBIDOPA\LEVODOPA
     Route: 050
     Dates: start: 20150320, end: 20150402
  3. DUODOPA [Suspect]
     Active Substance: CARBIDOPA\LEVODOPA
     Dosage: AM DOSE= 0ML, CONTIN DOSE= 1.4ML/H DURING 16HRS, EXTRA DOSE= 1ML
     Route: 050
     Dates: start: 20150402
  4. DUODOPA [Suspect]
     Active Substance: CARBIDOPA\LEVODOPA
     Dosage: AM DOSE=3ML, CONTIN DOSE=1.7ML/H FOR 16HRS, EXTRA DOSE=0.8ML
     Route: 050
     Dates: start: 20121205, end: 20130111
  5. DUODOPA [Suspect]
     Active Substance: CARBIDOPA\LEVODOPA
     Dosage: AM DOSE=3ML, CONTIN DOSE=1.8ML/H, EXTRA DOSE=0.8ML
     Route: 050
     Dates: start: 20111209, end: 20121205
  6. DUODOPA [Suspect]
     Active Substance: CARBIDOPA\LEVODOPA
     Dosage: AM DOSE=3ML, CONTIN DOSE=1.8ML/H FOR 16HRS AND EXTRA DOSE=0.8ML
     Route: 050
     Dates: start: 20130111, end: 20130215
  7. DUODOPA [Suspect]
     Active Substance: CARBIDOPA\LEVODOPA
     Indication: PARKINSON^S DISEASE
     Dosage: AM=3ML, CONTIN (FOR 16HRS)=1.8ML/H BEFORE NOON, 2.1ML/H PM, EXTRA=0.8ML
     Route: 050
     Dates: start: 20111205, end: 20111209
  8. DUODOPA [Suspect]
     Active Substance: CARBIDOPA\LEVODOPA
     Dosage: AM DOSE: 3ML, CONTIN DOSE: 1.8ML/H DURING 16HRS, EXTRA DOSE:0.8ML
     Route: 050
     Dates: start: 20130218, end: 20130305
  9. ASAFLOW [Concomitant]
     Active Substance: ASPIRIN
     Indication: PRODUCT USED FOR UNKNOWN INDICATION

REACTIONS (7)
  - Incorrect route of drug administration [Unknown]
  - Intentional medical device removal by patient [Unknown]
  - Dementia [Unknown]
  - Cognitive disorder [Unknown]
  - Freezing phenomenon [Unknown]
  - Confusional state [Unknown]
  - Dyskinesia [Unknown]

NARRATIVE: CASE EVENT DATE: 20130305
